FAERS Safety Report 4819381-X (Version None)
Quarter: 2005Q4

REPORT INFORMATION
  Report Type: 
  Country: None (occurrence: None)
  Receive Date: 20051031
  Receipt Date: 20050731
  Transmission Date: 20060501
  Serious: No
  Sender: FDA-Public Use
  Company Number: 2005PV000720

PATIENT
  Sex: Male

DRUGS (7)
  1. SYMLIN [Suspect]
     Indication: DIABETES MELLITUS NON-INSULIN-DEPENDENT
     Dosage: 60 MCG;BID;SC
     Route: 058
     Dates: start: 20050726, end: 20050730
  2. LISINOPRIL [Concomitant]
  3. LIPITOR [Concomitant]
  4. NOVOLIN [Concomitant]
  5. HUMALOG [Concomitant]
  6. LANTUS [Concomitant]
  7. METFORMIN [Concomitant]

REACTIONS (6)
  - ABDOMINAL DISTENSION [None]
  - BLOOD GLUCOSE FLUCTUATION [None]
  - COUGH [None]
  - DIARRHOEA [None]
  - NAUSEA [None]
  - RHINORRHOEA [None]
